FAERS Safety Report 10468738 (Version 1)
Quarter: 2014Q3

REPORT INFORMATION
  Report Type: Spontaneous
  Country: ES (occurrence: ES)
  Receive Date: 20140922
  Receipt Date: 20140922
  Transmission Date: 20150326
  Serious: Yes (Other)
  Sender: FDA-Public Use
  Company Number: PHHY2014ES120801

PATIENT
  Age: 71 Year
  Sex: Male

DRUGS (4)
  1. AMIODARONE [Interacting]
     Active Substance: AMIODARONE
     Dosage: 300 MG, UNK
  2. DIGOXIN. [Suspect]
     Active Substance: DIGOXIN
     Dosage: 0.25 MG, UNK
  3. AMIODARONE [Interacting]
     Active Substance: AMIODARONE
     Dosage: 150 MG, UNK
  4. DIGOXIN. [Interacting]
     Active Substance: DIGOXIN
     Dosage: 0.125 MG, UNK

REACTIONS (7)
  - Cardiac arrest [Recovered/Resolved]
  - Atrial fibrillation [Recovered/Resolved]
  - Drug interaction [Unknown]
  - Ventricular flutter [Recovered/Resolved]
  - Ventricular fibrillation [Recovered/Resolved]
  - Cardiomyopathy [Recovered/Resolved]
  - Toxicity to various agents [Recovered/Resolved]
